FAERS Safety Report 8764360 (Version 1)
Quarter: 2012Q4

REPORT INFORMATION
  Report Type: 
  Country: JP (occurrence: JP)
  Receive Date: 20120831
  Receipt Date: 20120831
  Transmission Date: 20130627
  Serious: Yes (Death, Other)
  Sender: FDA-Public Use
  Company Number: PHHY2011JP117274

PATIENT
  Age: 46 Year
  Sex: Female

DRUGS (7)
  1. CICLOSPORIN [Suspect]
     Indication: PEMPHIGUS
     Dosage: 5 mg, QD
     Route: 048
  2. PREDNISOLONE [Suspect]
     Indication: PEMPHIGUS
     Dosage: 60 mg/kg, QD
     Route: 048
  3. PREDNISOLONE [Suspect]
     Dosage: 25 mg/kg, QD
  4. AZATHIOPRINE [Suspect]
     Indication: PEMPHIGUS
     Dosage: 100 mg, QD
  5. METHYLPREDNISOLONE [Suspect]
     Indication: PEMPHIGUS
     Dosage: 1000 mg, QD
  6. CYCLOPHOSPHAMIDE [Suspect]
     Indication: PEMPHIGUS
  7. DIAMINODIPHENYLSULFONE [Concomitant]
     Indication: PEMPHIGUS
     Dosage: 50 mg, QD

REACTIONS (5)
  - Respiratory failure [Fatal]
  - Thrombotic thrombocytopenic purpura [Fatal]
  - Deep vein thrombosis [Unknown]
  - Haemolytic anaemia [Unknown]
  - Drug ineffective [Unknown]
